FAERS Safety Report 7574200-6 (Version None)
Quarter: 2011Q2

REPORT INFORMATION
  Report Type: 
  Country: None (occurrence: None)
  Receive Date: 20110627
  Receipt Date: 20110106
  Transmission Date: 20111010
  Serious: Yes (Hospitalization, Other)
  Sender: FDA-Public Use
  Company Number: US-BAYER-201035760NA

PATIENT
  Age: 25 Year
  Sex: Female
  Weight: 68.027 kg

DRUGS (15)
  1. DROSPIRENONE AND ETHINYL ESTRADIOL [Suspect]
     Indication: PRODUCT USED FOR UNKNOWN INDICATION
     Dosage: UNK UNK, UNK
     Route: 048
     Dates: start: 20080701, end: 20090801
  2. CIPROFLOXACIN [Concomitant]
     Dosage: UNK
     Dates: start: 20060101
  3. YASMIN [Suspect]
     Indication: CONTRACEPTION
     Dosage: UNK UNK, UNK
     Route: 048
     Dates: start: 20080901
  4. YAZ [Suspect]
     Indication: CONTRACEPTION
     Dosage: UNK
     Dates: start: 20080701, end: 20080901
  5. CEPHALEXIN [Concomitant]
     Dosage: UNK
     Dates: start: 20060101
  6. PROZAC [Concomitant]
     Indication: DEPRESSION
     Dosage: UNK
     Dates: start: 20030101, end: 20080101
  7. WELLBUTRIN [Concomitant]
     Indication: DEPRESSION
     Dosage: UNK
     Dates: start: 20080101
  8. XYZAL [Concomitant]
  9. LEVAQUIN [Concomitant]
     Dosage: UNK
     Dates: start: 20060101
  10. IRON [IRON] [Concomitant]
  11. LORAZEPAM [Concomitant]
  12. NIFEREX [POLYSACCHARIDE-IRON COMPLEX] [Concomitant]
  13. IMURAN [Concomitant]
     Indication: IMMUNOSUPPRESSION
     Dosage: UNK
     Dates: start: 20060101, end: 20080101
  14. VITAMIN B12 NOS [Concomitant]
  15. PANTOPRAZOLE SODIUM [Concomitant]

REACTIONS (3)
  - CHOLECYSTITIS ACUTE [None]
  - GALLBLADDER DISORDER [None]
  - CHOLELITHIASIS [None]
